FAERS Safety Report 16787523 (Version 2)
Quarter: 2019Q3

REPORT INFORMATION
  Report Type: Spontaneous
  Country: JP (occurrence: JP)
  Receive Date: 20190909
  Receipt Date: 20190919
  Transmission Date: 20191005
  Serious: Yes (Hospitalization)
  Sender: FDA-Public Use
  Company Number: JP-BAYER-2019-163946

PATIENT
  Age: 21 Year
  Sex: Female

DRUGS (6)
  1. URSODEOXYCHOLIC ACID [Concomitant]
     Active Substance: URSODIOL
  2. BETAFERON [Suspect]
     Active Substance: INTERFERON BETA-1B
     Indication: MULTIPLE SCLEROSIS
     Route: 058
  3. E KEPPRA [Concomitant]
     Active Substance: LEVETIRACETAM
  4. SHIGMABITAN [BENFOTIAMINE;CYANOCOBALAMIN;PYRIDOXINE HYDROCHLORIDE] [Concomitant]
  5. DESYREL [Concomitant]
     Active Substance: TRAZODONE HYDROCHLORIDE
  6. EVAMYL 1 MG [Concomitant]
     Active Substance: LORMETAZEPAM

REACTIONS (3)
  - Hospitalisation [None]
  - Drug ineffective [None]
  - Liver function test increased [None]

NARRATIVE: CASE EVENT DATE: 20181201
